FAERS Safety Report 9052792 (Version 3)
Quarter: 2013Q2

REPORT INFORMATION
  Report Type: Spontaneous
  Country: GR (occurrence: GR)
  Receive Date: 20130207
  Receipt Date: 20130524
  Transmission Date: 20140414
  Serious: Yes (Hospitalization)
  Sender: FDA-Public Use
  Company Number: GR-ABBOTT-13P-066-1043788-00

PATIENT
  Age: 66 Year
  Sex: Female

DRUGS (6)
  1. HUMIRA [Suspect]
     Indication: RHEUMATOID ARTHRITIS
     Route: 058
     Dates: start: 200905, end: 201212
  2. METHOTREXATE [Concomitant]
     Indication: RHEUMATOID ARTHRITIS
     Dates: end: 201212
  3. PREZOLON [Concomitant]
     Indication: RHEUMATOID ARTHRITIS
  4. FILICINE [Concomitant]
     Indication: PRODUCT USED FOR UNKNOWN INDICATION
  5. ZYLAPOUR [Concomitant]
     Indication: HYPERURICAEMIA
  6. LEXOTANIL [Concomitant]
     Indication: PRODUCT USED FOR UNKNOWN INDICATION

REACTIONS (4)
  - Pyrexia [Unknown]
  - Paraspinal abscess [Recovered/Resolved]
  - Cough [Unknown]
  - Intervertebral discitis [Recovering/Resolving]
